FAERS Safety Report 7286846-3 (Version None)
Quarter: 2011Q1

REPORT INFORMATION
  Report Type: 
  Country: None (occurrence: None)
  Receive Date: 20110210
  Receipt Date: 20101209
  Transmission Date: 20110831
  Serious: Yes (Other)
  Sender: FDA-Public Use
  Company Number: US-BAYER-201036382NA

PATIENT
  Age: 60 Year
  Sex: Male

DRUGS (4)
  1. VIAGRA [Concomitant]
     Dosage: FILLED ON 08-MAY-2010
  2. LEVITRA [Suspect]
     Route: 048
     Dates: start: 20101004
  3. LEVITRA [Suspect]
     Indication: ERECTILE DYSFUNCTION
     Route: 048
     Dates: start: 20080205
  4. CIALIS [Concomitant]
     Dosage: FILLED ON MAR-2009
     Route: 065

REACTIONS (4)
  - HYPOAESTHESIA [None]
  - LOSS OF CONSCIOUSNESS [None]
  - BLINDNESS TRANSIENT [None]
  - FEELING ABNORMAL [None]
